FAERS Safety Report 5636655-3 (Version None)
Quarter: 2008Q1

REPORT INFORMATION
  Report Type: 
  Country: None (occurrence: None)
  Receive Date: 20080225
  Receipt Date: 20080212
  Transmission Date: 20080703
  Serious: Yes (Other)
  Sender: FDA-Public Use
  Company Number: US-BAYER-200810634BCC

PATIENT
  Age: 64 Year
  Sex: Male
  Weight: 91 kg

DRUGS (9)
  1. ASPIRIN [Suspect]
     Indication: ANALGESIA
     Route: 048
     Dates: start: 19880101, end: 20020101
  2. ASPIRIN [Suspect]
     Indication: ISCHAEMIC HEART DISEASE PROPHYLAXIS
     Dosage: TOTAL DAILY DOSE: 325 MG  UNIT DOSE: 325 MG
     Route: 048
     Dates: start: 20020101
  3. ASPIRIN [Suspect]
     Route: 048
     Dates: start: 20020101
  4. LASIX [Concomitant]
  5. LOPRESSOR [Concomitant]
  6. LANOXIN [Concomitant]
  7. PRINIVIL [Concomitant]
  8. KLONOPIN [Concomitant]
  9. ZOCOR [Concomitant]

REACTIONS (4)
  - BLOOD CHOLESTEROL INCREASED [None]
  - CARDIAC OPERATION [None]
  - DEAFNESS [None]
  - TINNITUS [None]
